FAERS Safety Report 6924807-1 (Version None)
Quarter: 2010Q3

REPORT INFORMATION
  Report Type: 
  Country: None (occurrence: None)
  Receive Date: 20100816
  Receipt Date: 20100802
  Transmission Date: 20110219
  Serious: Yes (Other)
  Sender: FDA-Public Use
  Company Number: KR-TYCO HEALTHCARE/MALLINCKRODT-T201001732

PATIENT
  Age: 69 Year
  Sex: Male

DRUGS (3)
  1. EXALGO [Suspect]
     Indication: PRODUCT USED FOR UNKNOWN INDICATION
     Dosage: 16 MG, QD
     Route: 048
     Dates: start: 20100701
  2. ASPIRIN [Concomitant]
  3. ALL OTHER THERAPEUTIC PRODUCTS [Concomitant]
     Indication: GASTROINTESTINAL DISORDER

REACTIONS (3)
  - AGGRESSION [None]
  - JEALOUS DELUSION [None]
  - VISUAL IMPAIRMENT [None]
